FAERS Safety Report 9083538 (Version 1)
Quarter: 2013Q1

REPORT INFORMATION
  Report Type: Report from Study
  Country: US (occurrence: US)
  Receive Date: 20130129
  Receipt Date: 20130129
  Transmission Date: 20140127
  Serious: No
  Sender: FDA-Public Use
  Company Number: US-ABBOTT-12P-163-0948619-00

PATIENT
  Age: 55 Year
  Sex: Female

DRUGS (3)
  1. HUMIRA 40 MG/0.8 ML PEN [Suspect]
     Indication: RHEUMATOID ARTHRITIS
     Dates: start: 200401, end: 201111
  2. VICODIN [Concomitant]
     Indication: PRODUCT USED FOR UNKNOWN INDICATION
  3. VICODIN [Concomitant]

REACTIONS (9)
  - Oedema peripheral [Recovering/Resolving]
  - Drug effect decreased [Recovering/Resolving]
  - Pain [Recovering/Resolving]
  - Bronchitis chronic [Unknown]
  - Ear infection [Unknown]
  - Sinusitis [Unknown]
  - Dyspnoea [Unknown]
  - Intervertebral disc degeneration [Unknown]
  - Rheumatoid arthritis [Unknown]
